FAERS Safety Report 4892710-7 (Version None)
Quarter: 2006Q1

REPORT INFORMATION
  Report Type: 
  Country: None (occurrence: None)
  Receive Date: 20060125
  Receipt Date: 20060125
  Transmission Date: 20060701
  Serious: No
  Sender: FDA-Public Use
  Company Number: None

PATIENT
  Sex: Male
  Weight: 148 kg

DRUGS (12)
  1. HEPARIN [Suspect]
     Indication: THROMBOSIS PROPHYLAXIS
     Dosage: 7500 UNITS SUBCUTANEOUS EVERY 8 HOURS
     Route: 058
     Dates: start: 20051123, end: 20051126
  2. CEFEPIME [Concomitant]
  3. INSULIN [Concomitant]
  4. LORAZEPAM [Concomitant]
  5. METRONIDAZOLE [Concomitant]
  6. NYSTATIN CREAM + POWDER [Concomitant]
  7. OPHTHALMIC OINTMENT [Concomitant]
  8. SUCRALFATE [Concomitant]
  9. VANCOMYCIN [Concomitant]
  10. FENTANYL [Concomitant]
  11. NOREPINEPHRINE [Concomitant]
  12. VASOPRESSIN [Concomitant]

REACTIONS (2)
  - ANTIBODY TEST POSITIVE [None]
  - PLATELET COUNT DECREASED [None]
